FAERS Safety Report 24838755 (Version 2)
Quarter: 2025Q1

REPORT INFORMATION
  Report Type: Report from Study
  Country: GB (occurrence: GB)
  Receive Date: 20250113
  Receipt Date: 20250131
  Transmission Date: 20250408
  Serious: Yes (Hospitalization, Other)
  Sender: ALEXION PHARMACEUTICALS
  Company Number: GB-ASTRAZENECA-202412GLO013856GB

PATIENT
  Age: 4 Year
  Weight: 9 kg

DRUGS (30)
  1. ULTOMIRIS [Suspect]
     Active Substance: RAVULIZUMAB-CWVZ
     Indication: Atypical haemolytic uraemic syndrome
     Dosage: UNK, Q4W
  2. ULTOMIRIS [Suspect]
     Active Substance: RAVULIZUMAB-CWVZ
     Dosage: 600 MILLIGRAM, CONCENTRATE TO 6ML OF SODIUM CHLORIDE 0.9 PERCENT INTO SODIUM CHLORIDE. 0.9 PERCENT INFUSION BAG, THEN ADMINISTER 12 ML OVER 45 MIN USING A 0.2 MICRON FILTER AS DIRECTED QMONTH
  3. SOLIRIS [Suspect]
     Active Substance: ECULIZUMAB
     Indication: Atypical haemolytic uraemic syndrome
  4. ATENOLOL [Concomitant]
     Active Substance: ATENOLOL
     Indication: Hypertension
     Dosage: 7.5 MILLIGRAM, SOLUTION  QD
  5. ATENOLOL [Concomitant]
     Active Substance: ATENOLOL
     Dosage: 7.5 MILLIGRAM, SOLUTION, QD
  6. ATENOLOL [Concomitant]
     Active Substance: ATENOLOL
     Dosage: 8 MILLIGRAM, SOLUTION QD
  7. ATENOLOL [Concomitant]
     Active Substance: ATENOLOL
     Dosage: 7.5 MILLIGRAM, SOLUTION, QD
  8. AMLODIPINE [Concomitant]
     Active Substance: AMLODIPINE BESYLATE
     Indication: Hypertension
     Dosage: 1.4 MILLILITER, BID
  9. AMLODIPINE [Concomitant]
     Active Substance: AMLODIPINE BESYLATE
     Dosage: 1.2 MILLIGRAM, BID
  10. AMLODIPINE [Concomitant]
     Active Substance: AMLODIPINE BESYLATE
     Dosage: 2.5 MILLIGRAM, TABLET,  QD
  11. AMLODIPINE [Concomitant]
     Active Substance: AMLODIPINE BESYLATE
     Dosage: 5 MILLIGRAM, TABLET, QD, CRUSH AND DISPERSE ONE TABLET IN 5ML OF WATER AND GIVE A 2.5ML DOSE
  12. CHLORPHENIRAMINE MALEATE [Concomitant]
     Active Substance: CHLORPHENIRAMINE MALEATE
     Indication: Allergy prophylaxis
  13. FOLIC ACID [Concomitant]
     Active Substance: FOLIC ACID
     Indication: Nutritional supplementation
     Dosage: 3.5 MILLIGRAM, SOLUTION, QD
  14. FOLIC ACID [Concomitant]
     Active Substance: FOLIC ACID
     Dosage: 3.5 MILLIGRAM, SOLUTION, QD
  15. HYDROCORTISONE [Concomitant]
     Active Substance: HYDROCORTISONE
     Indication: Wound treatment
     Dosage: UNK, TIW
  16. LEVOTHYROXINE [Concomitant]
     Active Substance: LEVOTHYROXINE
     Dosage: 25 MICROGRAM, QD
  17. SODIUM FEREDETATE [Concomitant]
     Active Substance: SODIUM FEREDETATE
     Indication: Haemoglobin decreased
     Dosage: 95 MILLIGRAM, SOLUTION  BID
  18. SODIUM FEREDETATE [Concomitant]
     Active Substance: SODIUM FEREDETATE
     Dosage: 95 MILLIGRAM, SOLUTION QD
  19. LIDOCAINE AND PRILOCAINE [Concomitant]
     Active Substance: LIDOCAINE\PRILOCAINE
     Indication: Pain
  20. LIDOCAINE AND PRILOCAINE [Concomitant]
     Active Substance: LIDOCAINE\PRILOCAINE
  21. PENICILLIN V [Concomitant]
     Active Substance: PENICILLIN V
     Indication: Prophylaxis
     Dosage: 73 MILLIGRAM, SOLUTION, BID
  22. SODIUM PICOSULFATE [Concomitant]
     Active Substance: SODIUM PICOSULFATE
     Indication: Constipation
  23. HEPARIN [Concomitant]
     Active Substance: HEPARIN SODIUM
  24. POVIDONE-IODINE [Concomitant]
     Active Substance: POVIDONE-IODINE
     Indication: Flushing
     Route: 065
  25. BETADINE [Concomitant]
     Active Substance: POVIDONE-IODINE
     Route: 065
  26. SODIUM CHLORIDE [Concomitant]
     Active Substance: SODIUM CHLORIDE
  27. SODIUM CHLORIDE [Concomitant]
     Active Substance: SODIUM CHLORIDE
  28. SODIUM CHLORIDE [Concomitant]
     Active Substance: SODIUM CHLORIDE
  29. SODIUM CHLORIDE [Concomitant]
     Active Substance: SODIUM CHLORIDE
  30. SODIUM CHLORIDE [Concomitant]
     Active Substance: SODIUM CHLORIDE

REACTIONS (3)
  - Staphylococcal infection [Recovered/Resolved]
  - Device related sepsis [Unknown]
  - Bacillus test positive [Recovered/Resolved]
